FAERS Safety Report 4559683-8 (Version None)
Quarter: 2005Q2

REPORT INFORMATION
  Report Type: 
  Country: None (occurrence: None)
  Receive Date: 20050114
  Receipt Date: 20040107
  Transmission Date: 20051028
  Serious: Yes (Other)
  Sender: FDA-Public Use
  Company Number: FEI2004-0006

PATIENT
  Age: 22 Year
  Sex: Female

DRUGS (1)
  1. INTRAUTERINE COPPER CONTRACEPTIVE [Suspect]
     Indication: CONTRACEPTION
     Dosage: NA, NA; INTRA-UTERINE
     Dates: start: 20030201

REACTIONS (2)
  - UNINTENDED PREGNANCY [None]
  - UTERINE PERFORATION [None]
